FAERS Safety Report 5724048-X (Version None)
Quarter: 2008Q2

REPORT INFORMATION
  Report Type: 
  Country: None (occurrence: None)
  Receive Date: 20080430
  Receipt Date: 20080423
  Transmission Date: 20081010
  Serious: Yes (Death, Other)
  Sender: FDA-Public Use
  Company Number: US-BOEHRINGER INGELHEIM GMBH, GERMANY-2008-BP-06417RO

PATIENT
  Age: 54 Year
  Sex: Male

DRUGS (9)
  1. METHADONE HCL [Suspect]
     Indication: PAIN
     Route: 048
  2. METHADONE HCL [Suspect]
     Route: 042
  3. METHADONE HCL [Suspect]
     Route: 042
  4. FENTANYL CITRATE [Suspect]
     Indication: PAIN
     Route: 002
  5. LORAZEPAM [Concomitant]
     Indication: MYOCLONUS
  6. KETAMINE HCL [Concomitant]
     Indication: PAIN
     Route: 042
  7. LEVETIRACETAM [Concomitant]
  8. PREGABALIN [Concomitant]
  9. DEXAMETHASONE [Concomitant]

REACTIONS (7)
  - ACTIVITIES OF DAILY LIVING IMPAIRED [None]
  - ALLODYNIA [None]
  - DEATH [None]
  - DELIRIUM [None]
  - MYOCLONUS [None]
  - NEURALGIA [None]
  - PAIN [None]
